FAERS Safety Report 9671880 (Version 1)
Quarter: 2013Q4

REPORT INFORMATION
  Report Type: Report from Study
  Country: US (occurrence: US)
  Receive Date: 20131106
  Receipt Date: 20131106
  Transmission Date: 20140711
  Serious: Yes (Other)
  Sender: FDA-Public Use
  Company Number: US-JNJFOC-20131018188

PATIENT
  Sex: Female
  Weight: 56.25 kg

DRUGS (2)
  1. REMICADE [Suspect]
     Indication: CROHN^S DISEASE
     Route: 042
     Dates: start: 2013
  2. REMICADE [Suspect]
     Indication: CROHN^S DISEASE
     Route: 042
     Dates: start: 201306

REACTIONS (3)
  - Sinusitis [Unknown]
  - Pain [Not Recovered/Not Resolved]
  - Lymphadenopathy [Recovering/Resolving]
